FAERS Safety Report 7190798-4 (Version None)
Quarter: 2010Q4

REPORT INFORMATION
  Report Type: 
  Country: None (occurrence: None)
  Receive Date: 20101221
  Receipt Date: 20101221
  Transmission Date: 20110411
  Serious: No
  Sender: FDA-Public Use
  Company Number: None

PATIENT
  Age: 52 Year
  Sex: Female
  Weight: 61.2356 kg

DRUGS (3)
  1. RISPERIDONE [Suspect]
     Indication: BIPOLAR DISORDER
     Dosage: .5MG 1 IN AM / 2 @ NIGHT
     Dates: start: 20101201, end: 20101231
  2. DIVALPROEX 250MG BARTELL DRUGS [Suspect]
     Indication: BIPOLAR DISORDER
     Dosage: 250MG 1 IN AM/ 2 @ NIGHT
     Dates: start: 20101201, end: 20101231
  3. SYNTHROID [Concomitant]

REACTIONS (6)
  - ABDOMINAL DISTENSION [None]
  - AGITATION [None]
  - CONSTIPATION [None]
  - DROOLING [None]
  - ERUCTATION [None]
  - PRODUCT QUALITY ISSUE [None]
